APPROVED DRUG PRODUCT: TACARYL
Active Ingredient: METHDILAZINE HYDROCHLORIDE
Strength: 8MG
Dosage Form/Route: TABLET;ORAL
Application: N011950 | Product #006
Applicant: WESTWOOD SQUIBB PHARMACEUTICALS INC
Approved: Approved Prior to Jan 1, 1982 | RLD: No | RS: No | Type: DISCN